FAERS Safety Report 19762643 (Version 2)
Quarter: 2021Q4

REPORT INFORMATION
  Report Type: Report from Study
  Country: JP (occurrence: None)
  Receive Date: 20210830
  Receipt Date: 20211110
  Transmission Date: 20220303
  Serious: Yes (Death)
  Sender: FDA-Public Use
  Company Number: JP-MERCK HEALTHCARE KGAA-9261078

PATIENT
  Sex: Male
  Weight: 54 kg

DRUGS (16)
  1. BAVENCIO [Suspect]
     Active Substance: AVELUMAB
     Indication: Metastatic renal cell carcinoma
     Dosage: 580 MG,
     Route: 041
     Dates: start: 20200730
  2. BAVENCIO [Suspect]
     Active Substance: AVELUMAB
     Route: 041
     Dates: start: 20201023, end: 20210730
  3. INLYTA [Suspect]
     Active Substance: AXITINIB
     Indication: Metastatic renal cell carcinoma
     Route: 048
     Dates: start: 20200730, end: 20200805
  4. INLYTA [Suspect]
     Active Substance: AXITINIB
     Route: 048
     Dates: start: 20200806, end: 20200910
  5. INLYTA [Suspect]
     Active Substance: AXITINIB
     Route: 048
     Dates: start: 20200911
  6. INLYTA [Suspect]
     Active Substance: AXITINIB
     Route: 048
     Dates: start: 20210226, end: 20210423
  7. INLYTA [Suspect]
     Active Substance: AXITINIB
     Route: 048
     Dates: start: 20210423, end: 20210521
  8. INLYTA [Suspect]
     Active Substance: AXITINIB
     Route: 048
     Dates: start: 20210521, end: 20210812
  9. ACETONE [Concomitant]
     Active Substance: ACETONE
     Indication: Product used for unknown indication
  10. PREDNISOLONE [Concomitant]
     Active Substance: PREDNISOLONE
     Indication: Product used for unknown indication
     Route: 048
  11. IBUPROFEN [Concomitant]
     Active Substance: IBUPROFEN
     Indication: Premedication
     Route: 048
     Dates: start: 20200730
  12. IBUPROFEN [Concomitant]
     Active Substance: IBUPROFEN
     Route: 048
     Dates: start: 20201023, end: 20210730
  13. FAMOTIDINE [Concomitant]
     Active Substance: FAMOTIDINE
     Indication: Premedication
     Route: 042
     Dates: start: 20200730
  14. POLARAMINE [Concomitant]
     Active Substance: DEXCHLORPHENIRAMINE MALEATE
     Indication: Premedication
     Route: 041
     Dates: start: 20200730
  15. POLARAMINE [Concomitant]
     Active Substance: DEXCHLORPHENIRAMINE MALEATE
     Route: 041
     Dates: start: 20201023, end: 20210730
  16. ACETAMINOPHEN [Concomitant]
     Active Substance: ACETAMINOPHEN
     Indication: Premedication
     Route: 041
     Dates: start: 20200730

REACTIONS (2)
  - Cerebral artery embolism [Fatal]
  - Pneumonia aspiration [Fatal]
